FAERS Safety Report 6402624-9 (Version None)
Quarter: 2009Q4

REPORT INFORMATION
  Report Type: 
  Country: None (occurrence: None)
  Receive Date: 20091009
  Receipt Date: 20090930
  Transmission Date: 20100525
  Serious: Yes (Hospitalization)
  Sender: FDA-Public Use
  Company Number: ADR34672009

PATIENT
  Age: 77 Year
  Sex: Male

DRUGS (4)
  1. CIPROFLOXACIN [Suspect]
     Indication: ANTIBIOTIC PROPHYLAXIS
     Dosage: 1 G, ORAL
     Route: 048
     Dates: start: 20060401, end: 20060901
  2. FINASTERIDE [Concomitant]
  3. CETOSTEARYL ALCOHOL CREAM [Concomitant]
  4. BETNOVATE CREAM [Concomitant]

REACTIONS (2)
  - HEPATIC FAILURE [None]
  - URINARY RETENTION [None]
